FAERS Safety Report 18666237 (Version 1)
Quarter: 2020Q4

REPORT INFORMATION
  Report Type: Spontaneous
  Country: AU (occurrence: AU)
  Receive Date: 20201226
  Receipt Date: 20201226
  Transmission Date: 20210114
  Serious: Yes (Other)
  Sender: FDA-Public Use
  Company Number: NVSC2020AU333248

PATIENT
  Age: 66 Year
  Sex: Male
  Weight: 84.4 kg

DRUGS (12)
  1. METHOTREXATE. [Suspect]
     Active Substance: METHOTREXATE
     Dosage: 1 DF, QD (10 MG/M2)
     Route: 040
     Dates: start: 20191223, end: 20191223
  2. CYCLOSPORINE. [Suspect]
     Active Substance: CYCLOSPORINE
     Indication: PROPHYLAXIS AGAINST GRAFT VERSUS HOST DISEASE
     Dosage: 2 DF, QD (140 MG)
     Route: 040
     Dates: start: 20191219, end: 20191225
  3. METHOTREXATE. [Suspect]
     Active Substance: METHOTREXATE
     Indication: PROPHYLAXIS AGAINST GRAFT VERSUS HOST DISEASE
     Dosage: 1 DF, QD (15 MG/M2)
     Route: 040
     Dates: start: 20191213, end: 20191213
  4. CYTARABINE. [Suspect]
     Active Substance: CYTARABINE
     Indication: ACUTE MYELOID LEUKAEMIA
     Dosage: 201 MG, QD (BY CONTINUOUS INFUSION, INDUCTION)
     Route: 041
     Dates: start: 20190904, end: 20190911
  5. CYCLOSPORINE. [Suspect]
     Active Substance: CYCLOSPORINE
     Dosage: 1 DF, QD (140 MG)
     Route: 040
     Dates: start: 20191226, end: 20191226
  6. CYTARABINE. [Suspect]
     Active Substance: CYTARABINE
     Dosage: 2.010 MG, BID (OVER 3 HOURS, TWICE DAILY ON DAYS 1, 3, 5, CONSOLIDATION WITH SINGLE-AGENT CYTARABINE
     Route: 042
     Dates: start: 20191010, end: 20191015
  7. VORICONAZOLE. [Suspect]
     Active Substance: VORICONAZOLE
     Indication: ANTIVIRAL PROPHYLAXIS
     Dosage: 1 DF, QD (200 MG)
     Route: 040
     Dates: start: 20191220, end: 20191220
  8. VORICONAZOLE. [Suspect]
     Active Substance: VORICONAZOLE
     Dosage: 2 DF, QD (200 MG)
     Route: 040
     Dates: start: 20191221, end: 20191225
  9. METHOTREXATE. [Suspect]
     Active Substance: METHOTREXATE
     Dosage: 1 DF, QD (10 MG/M2)
     Route: 040
     Dates: start: 20191215, end: 20191215
  10. VORICONAZOLE. [Suspect]
     Active Substance: VORICONAZOLE
     Dosage: 1 DF, QD (200 MG)
     Route: 040
     Dates: start: 20191226, end: 20191226
  11. METHOTREXATE. [Suspect]
     Active Substance: METHOTREXATE
     Dosage: 1 DF, QD (10 MG/M2)
     Route: 040
     Dates: start: 20191218, end: 20191218
  12. DAUNORUBICIN HCL [Suspect]
     Active Substance: DAUNORUBICIN HYDROCHLORIDE
     Indication: ACUTE MYELOID LEUKAEMIA
     Dosage: 121 MG, QD (BY CONTINUOS INFUSION, INDUCTION)
     Route: 041
     Dates: start: 20190904, end: 20190906

REACTIONS (2)
  - Aspartate aminotransferase increased [Recovered/Resolved]
  - Alanine aminotransferase increased [Recovered/Resolved]

NARRATIVE: CASE EVENT DATE: 20191226
